FAERS Safety Report 5171274-7 (Version None)
Quarter: 2006Q4

REPORT INFORMATION
  Report Type: 
  Country: None (occurrence: None)
  Receive Date: 20061213
  Receipt Date: 20060215
  Transmission Date: 20070319
  Serious: Yes (Hospitalization)
  Sender: FDA-Public Use
  Company Number: US-AMGEN-STX169971

PATIENT
  Sex: Female

DRUGS (1)
  1. ENBREL [Suspect]
     Indication: PSORIATIC ARTHROPATHY
     Dates: start: 20040101, end: 20050901

REACTIONS (5)
  - ARTHRALGIA [None]
  - MYOCARDIAL INFARCTION [None]
  - PAIN [None]
  - PAIN IN EXTREMITY [None]
  - THROMBOSIS [None]
